FAERS Safety Report 16184544 (Version 3)
Quarter: 2019Q2

REPORT INFORMATION
  Report Type: Spontaneous
  Country: US (occurrence: US)
  Receive Date: 20190411
  Receipt Date: 20190625
  Transmission Date: 20190711
  Serious: Yes (Other)
  Sender: FDA-Public Use
  Company Number: US-PFIZER INC-2019151223

PATIENT
  Age: 68 Year
  Sex: Female
  Weight: 81.83 kg

DRUGS (11)
  1. ELIQUIS [Concomitant]
     Active Substance: APIXABAN
     Indication: ATRIAL FIBRILLATION
     Dosage: 5 MG, 1X/DAY
  2. DOFETILIDE. [Suspect]
     Active Substance: DOFETILIDE
     Dosage: 250 UG, 2X/DAY (1 EVERY 12 HR.)
     Route: 048
     Dates: start: 20190228
  3. SPIRIVA [Concomitant]
     Active Substance: TIOTROPIUM BROMIDE MONOHYDRATE
     Dosage: 2 PUFF, DAILY
  4. BUSPIRONE HCL [Concomitant]
     Active Substance: BUSPIRONE HYDROCHLORIDE
     Dosage: 5 MG, 2X/DAY (10 MG 1/2 TAB)
  5. DOFETILIDE. [Suspect]
     Active Substance: DOFETILIDE
     Indication: ATRIAL FIBRILLATION
     Dosage: 250 UG, 2X/DAY
     Route: 048
     Dates: start: 20190302
  6. DOFETILIDE. [Suspect]
     Active Substance: DOFETILIDE
     Dosage: 250 UG, DAILY (250 MCG Q 12 HRS)
     Route: 048
     Dates: start: 201706, end: 20190409
  7. MONTELUKAST SODIUM. [Concomitant]
     Active Substance: MONTELUKAST SODIUM
     Dosage: 10 MG, DAILY (NIGHTLY)
  8. METOPROLOL TARTRATE. [Concomitant]
     Active Substance: METOPROLOL TARTRATE
     Indication: CARDIAC DISORDER
     Dosage: 50 MG, 2X/DAY
     Dates: end: 2017
  9. ELIQUIS [Concomitant]
     Active Substance: APIXABAN
     Dosage: 5 MG, 2X/DAY
     Dates: start: 201706
  10. PRAVASTATIN. [Concomitant]
     Active Substance: PRAVASTATIN
     Dosage: 20 MG, DAILY
  11. LISINOPRIL. [Concomitant]
     Active Substance: LISINOPRIL
     Indication: CARDIAC DISORDER
     Dosage: 20 MG, DAILY

REACTIONS (7)
  - Dyspnoea [Unknown]
  - Palpitations [Unknown]
  - Supraventricular tachycardia [Unknown]
  - Drug ineffective [Not Recovered/Not Resolved]
  - Arrhythmia supraventricular [Unknown]
  - Vulval cancer [Recovered/Resolved with Sequelae]
  - Nodal arrhythmia [Unknown]

NARRATIVE: CASE EVENT DATE: 201903
